FAERS Safety Report 8188022-9 (Version None)
Quarter: 2012Q1

REPORT INFORMATION
  Report Type: 
  Country: None (occurrence: None)
  Receive Date: 20120306
  Receipt Date: 20120221
  Transmission Date: 20120608
  Serious: Yes (Other)
  Sender: FDA-Public Use
  Company Number: JP-WATSON-2011-17608

PATIENT
  Age: 80 Year
  Sex: Female

DRUGS (5)
  1. FLUOROURACIL [Suspect]
     Dosage: 2400 MG/BODY (INFUSION)
     Route: 065
  2. LEUCOVORIN CALCIUM [Suspect]
     Indication: RECTAL CANCER RECURRENT
     Dosage: 225 MG/BODY
  3. FLUOROURACIL [Suspect]
     Indication: RECTAL CANCER RECURRENT
     Dosage: 400 MG/BODY (BOLUS)X 8 COURSES
     Route: 065
  4. OXALIPLATIN [Suspect]
     Indication: RECTAL CANCER RECURRENT
     Dosage: 75 MG/BODY
     Route: 065
  5. BEVACIZUMAB [Suspect]
     Indication: RECTAL CANCER RECURRENT
     Dosage: 180 MG/BODY
     Route: 065

REACTIONS (6)
  - PROTEINURIA [None]
  - LEUKOPENIA [None]
  - CONDITION AGGRAVATED [None]
  - HYPOAESTHESIA [None]
  - NEUTROPENIA [None]
  - NEUROLOGICAL SYMPTOM [None]
